FAERS Safety Report 21369245 (Version 1)
Quarter: 2022Q3

REPORT INFORMATION
  Report Type: Spontaneous
  Country: DE (occurrence: DE)
  Receive Date: 20220923
  Receipt Date: 20220923
  Transmission Date: 20221026
  Serious: Yes (Other)
  Sender: FDA-Public Use
  Company Number: DE-SANOFI-01282037

PATIENT
  Age: 88 Year
  Sex: Female

DRUGS (2)
  1. ENOXAPARIN SODIUM [Suspect]
     Active Substance: ENOXAPARIN SODIUM
     Indication: Knee operation
     Dosage: 40 MG
     Dates: start: 20220612
  2. XARELTO [Concomitant]
     Active Substance: RIVAROXABAN
     Dosage: UNK
     Dates: end: 20220612

REACTIONS (2)
  - Compartment syndrome [Unknown]
  - Pain [Not Recovered/Not Resolved]
